FAERS Safety Report 15853495 (Version 2)
Quarter: 2019Q1

REPORT INFORMATION
  Report Type: Spontaneous
  Country: US (occurrence: US)
  Receive Date: 20190122
  Receipt Date: 20190213
  Transmission Date: 20190417
  Serious: Yes (Other)
  Sender: FDA-Public Use
  Company Number: US-GLAXOSMITHKLINE-US2019003459

PATIENT
  Age: 36 Year
  Sex: Female
  Weight: 68 kg

DRUGS (16)
  1. DEPO-MEDROL [Concomitant]
     Active Substance: METHYLPREDNISOLONE ACETATE
  2. VOLTAREN [Concomitant]
     Active Substance: DICLOFENAC SODIUM
  3. FLOMAX TABLET (TAMSULOSIN HYDROCHLORIDE) [Concomitant]
  4. PAXIL [Concomitant]
     Active Substance: PAROXETINE HYDROCHLORIDE
  5. NUCALA [Suspect]
     Active Substance: MEPOLIZUMAB
     Indication: ASTHMA
     Dosage: 100 MG, CYC
     Route: 058
     Dates: start: 20181127, end: 20190103
  6. SPIRIVA RESPIMAT [Concomitant]
     Active Substance: TIOTROPIUM BROMIDE
  7. SYMBICORT [Concomitant]
     Active Substance: BUDESONIDE\FORMOTEROL FUMARATE DIHYDRATE
  8. PROAIR HFA [Concomitant]
     Active Substance: ALBUTEROL SULFATE
  9. XOLAIR [Concomitant]
     Active Substance: OMALIZUMAB
  10. TAMIFLU [Concomitant]
     Active Substance: OSELTAMIVIR PHOSPHATE
  11. SINGULAIR [Concomitant]
     Active Substance: MONTELUKAST SODIUM
  12. ALBUTEROL SULFATE. [Concomitant]
     Active Substance: ALBUTEROL SULFATE
     Indication: PRODUCT USED FOR UNKNOWN INDICATION
     Dosage: 2 PUFF(S), PRN
     Route: 055
  13. QVAR [Concomitant]
     Active Substance: BECLOMETHASONE DIPROPIONATE
  14. AMITIZA [Concomitant]
     Active Substance: LUBIPROSTONE
  15. MELATONIN [Concomitant]
     Active Substance: MELATONIN
  16. ZYRTEC [Concomitant]
     Active Substance: CETIRIZINE HYDROCHLORIDE

REACTIONS (23)
  - Conjunctivitis [Recovering/Resolving]
  - Dysphagia [Unknown]
  - Condition aggravated [Unknown]
  - Viral upper respiratory tract infection [Unknown]
  - Lacrimation increased [Recovered/Resolved]
  - Generalised erythema [Recovered/Resolved]
  - Pruritus generalised [Recovered/Resolved]
  - Dyspnoea exertional [Unknown]
  - Cough [Unknown]
  - Eye pain [Recovered/Resolved]
  - Pharyngeal oedema [Recovering/Resolving]
  - Throat tightness [Recovered/Resolved]
  - Oropharyngeal pain [Unknown]
  - Anaphylactic reaction [Recovered/Resolved]
  - Dyspnoea [Not Recovered/Not Resolved]
  - Anxiety [Recovered/Resolved]
  - Ocular hyperaemia [Unknown]
  - Feeling hot [Unknown]
  - Eye pruritus [Recovered/Resolved]
  - Throat irritation [Recovered/Resolved]
  - Wheezing [Unknown]
  - Rhinitis [Recovered/Resolved]
  - Nasal congestion [Recovering/Resolving]

NARRATIVE: CASE EVENT DATE: 20190103
